FAERS Safety Report 4472536-9 (Version None)
Quarter: 2004Q4

REPORT INFORMATION
  Report Type: 
  Country: None (occurrence: None)
  Receive Date: 20041007
  Receipt Date: 20040924
  Transmission Date: 20050328
  Serious: Yes (Other)
  Sender: FDA-Public Use
  Company Number: S04-USA-06433-01

PATIENT
  Age: 17 Year
  Sex: Male

DRUGS (2)
  1. CELEXA [Suspect]
     Indication: ABNORMAL BEHAVIOUR
     Dosage: 20 MG QD PO
     Route: 048
     Dates: start: 20040210
  2. ALCOHOL (ALCOHOL) [Suspect]

REACTIONS (4)
  - AGGRESSION [None]
  - ALCOHOL INTERACTION [None]
  - LEGAL PROBLEM [None]
  - TREATMENT NONCOMPLIANCE [None]
